FAERS Safety Report 4721111-7 (Version None)
Quarter: 2005Q3

REPORT INFORMATION
  Report Type: 
  Country: None (occurrence: None)
  Receive Date: 20050719
  Receipt Date: 20040924
  Transmission Date: 20060218
  Serious: Yes (Other)
  Sender: FDA-Public Use
  Company Number: 2004231563US

PATIENT
  Sex: Female
  Weight: 72.6 kg

DRUGS (4)
  1. CELEBREX [Suspect]
     Indication: ARTHRITIS
     Dosage: 2 UNK, QD, ORAL
     Route: 048
     Dates: start: 20000101, end: 20030101
  2. ZOLOFT [Concomitant]
  3. NEURONTIN [Concomitant]
  4. LIPITOR [Concomitant]

REACTIONS (1)
  - RENAL FAILURE [None]
